FAERS Safety Report 4828152-X (Version None)
Quarter: 2005Q4

REPORT INFORMATION
  Report Type: 
  Country: None (occurrence: None)
  Receive Date: 20051110
  Receipt Date: 20051101
  Transmission Date: 20060501
  Serious: Yes (Hospitalization, Other)
  Sender: FDA-Public Use
  Company Number: HQWYE136831JAN03

PATIENT
  Age: 53 Year
  Sex: Male

DRUGS (8)
  1. SIROLIMUS (SIROLIMUS, SOLUTION) [Suspect]
     Indication: PROPHYLAXIS AGAINST TRANSPLANT REJECTION
     Dosage: 0.5 TO 1.0MG DAILY ORAL
     Route: 048
     Dates: start: 20020111
  2. QUININE SULFATE [Concomitant]
  3. BACTRIM [Concomitant]
  4. MAXEPA (CITRIC ACID/FATTY ACIDS NOS/GLUCOSE/INSULIN/INSULIN HUMAN INJE [Concomitant]
  5. CANDESARTAN CILEXETIL (CANDESARTAN CILEXETIL) [Concomitant]
  6. DILTIAZEM HYDROCHLORIDE [Concomitant]
  7. OMEPRAZOLE [Concomitant]
  8. FUROSEMIDE [Concomitant]

REACTIONS (2)
  - PAIN IN EXTREMITY [None]
  - PULMONARY EMBOLISM [None]
